FAERS Safety Report 6647977-1 (Version None)
Quarter: 2010Q1

REPORT INFORMATION
  Report Type: 
  Country: None (occurrence: None)
  Receive Date: 20100324
  Receipt Date: 20100303
  Transmission Date: 20100710
  Serious: Yes (Other)
  Sender: FDA-Public Use
  Company Number: US-BAYER-201012809BCC

PATIENT
  Age: 27 Year
  Sex: Female
  Weight: 64 kg

DRUGS (2)
  1. BACTINE LIQUID [Suspect]
     Indication: ACNE
     Dosage: BOTTLE COUNT 4OZ
     Route: 061
     Dates: start: 20100303
  2. ESCITALOPRAM [Concomitant]
     Route: 065

REACTIONS (1)
  - PHARYNGEAL HYPOAESTHESIA [None]
